FAERS Safety Report 19872868 (Version 1)
Quarter: 2021Q3

REPORT INFORMATION
  Report Type: Spontaneous
  Country: US (occurrence: US)
  Receive Date: 20210923
  Receipt Date: 20210923
  Transmission Date: 20211014
  Serious: Yes (Other)
  Sender: FDA-Public Use
  Company Number: None

PATIENT
  Age: 55 Year
  Sex: Female
  Weight: 85.05 kg

DRUGS (6)
  1. REGEN?COV [Suspect]
     Active Substance: CASIRIVIMAB\IMDEVIMAB
     Indication: COVID-19
     Dosage: ?          OTHER FREQUENCY:ONCE;?
     Route: 042
     Dates: start: 20210917, end: 20210917
  2. PREDNISONE 20 MG [Concomitant]
     Active Substance: PREDNISONE
  3. FAMOTIDINE 20 MG [Concomitant]
     Active Substance: FAMOTIDINE
  4. FLUTICASONE NASAL SPRAY [Concomitant]
     Active Substance: FLUTICASONE
  5. HCTZ 25 MG [Concomitant]
  6. CETIRIZINE [Concomitant]
     Active Substance: CETIRIZINE HYDROCHLORIDE

REACTIONS (3)
  - Chest pain [None]
  - Flank pain [None]
  - Infusion related reaction [None]

NARRATIVE: CASE EVENT DATE: 20210917
